FAERS Safety Report 10449118 (Version 1)
Quarter: 2014Q3

REPORT INFORMATION
  Report Type: Spontaneous
  Country: US (occurrence: None)
  Receive Date: 20140911
  Receipt Date: 20140911
  Transmission Date: 20150326
  Serious: No
  Sender: FDA-Public Use
  Company Number: None

PATIENT

DRUGS (2)
  1. FLUDROCORTISONE ACETATE. [Suspect]
     Active Substance: FLUDROCORTISONE ACETATE
     Route: 048
  2. DESMOPRESSIN ACETATE. [Suspect]
     Active Substance: DESMOPRESSIN ACETATE
     Route: 048

REACTIONS (2)
  - Drug dispensing error [None]
  - Product packaging confusion [None]
